FAERS Safety Report 15260595 (Version 1)
Quarter: 2018Q3

REPORT INFORMATION
  Report Type: Spontaneous
  Country: US (occurrence: US)
  Receive Date: 20180809
  Receipt Date: 20180809
  Transmission Date: 20181010
  Serious: No
  Sender: FDA-Public Use
  Company Number: US-BAYER-2018-144049

PATIENT
  Age: 70 Year
  Sex: Male
  Weight: 96.96 kg

DRUGS (1)
  1. GADAVIST [Suspect]
     Active Substance: GADOBUTROL
     Indication: NUCLEAR MAGNETIC RESONANCE IMAGING BRAIN
     Dosage: 9 CC, ONCE
     Route: 042
     Dates: start: 20180628, end: 20180628

REACTIONS (4)
  - Contrast media deposition [None]
  - Bone pain [Recovered/Resolved]
  - Feeling abnormal [Recovered/Resolved]
  - Pruritus [Not Recovered/Not Resolved]
